FAERS Safety Report 25467013 (Version 2)
Quarter: 2025Q3

REPORT INFORMATION
  Report Type: Spontaneous
  Country: US (occurrence: US)
  Receive Date: 20250623
  Receipt Date: 20250925
  Transmission Date: 20251020
  Serious: Yes (Other)
  Sender: AMGEN
  Company Number: US-AMGEN-USASP2025121051

PATIENT
  Age: 52 Year
  Sex: Female

DRUGS (1)
  1. TEPEZZA [Suspect]
     Active Substance: TEPROTUMUMAB-TRBW
     Indication: Product used for unknown indication
     Route: 065
     Dates: start: 20200415, end: 20200908

REACTIONS (2)
  - Blindness [Recovered/Resolved]
  - Exophthalmos [Unknown]

NARRATIVE: CASE EVENT DATE: 20240101
